FAERS Safety Report 16420500 (Version 1)
Quarter: 2019Q2

REPORT INFORMATION
  Report Type: Spontaneous
  Country: US (occurrence: US)
  Receive Date: 20190612
  Receipt Date: 20190612
  Transmission Date: 20190711
  Serious: No
  Sender: FDA-Public Use
  Company Number: US-PFIZER INC-2019245813

PATIENT
  Age: 45 Year
  Sex: Male
  Weight: 97 kg

DRUGS (5)
  1. GABAPENTIN. [Suspect]
     Active Substance: GABAPENTIN
     Indication: NEURALGIA
  2. LISINOPRIL. [Concomitant]
     Active Substance: LISINOPRIL
     Indication: RENAL DISORDER
     Dosage: 30 MG, 1X/DAY
     Route: 048
     Dates: start: 2007
  3. PLAVIX [Concomitant]
     Active Substance: CLOPIDOGREL BISULFATE
     Indication: ANTICOAGULANT THERAPY
     Dosage: 75 MG, 1X/DAY
     Route: 048
     Dates: start: 2007
  4. GABAPENTIN. [Suspect]
     Active Substance: GABAPENTIN
     Indication: DIABETIC NEUROPATHY
     Dosage: 200 MG, 4X/DAY (100 MG 2 PILLS 4 TIMES PER DAY)
     Route: 048
     Dates: start: 2019, end: 2019
  5. GABAPENTIN. [Suspect]
     Active Substance: GABAPENTIN
     Indication: RENAL DISORDER
     Dosage: 300 MG, 4X/DAY
     Route: 048
     Dates: start: 2019, end: 201905

REACTIONS (2)
  - Drug ineffective for unapproved indication [Unknown]
  - Off label use [Unknown]

NARRATIVE: CASE EVENT DATE: 2019
